FAERS Safety Report 4417813-2 (Version None)
Quarter: 2004Q2

REPORT INFORMATION
  Report Type: 
  Country: None (occurrence: None)
  Receive Date: 20040624
  Receipt Date: 20030925
  Transmission Date: 20050107
  Serious: No
  Sender: FDA-Public Use
  Company Number: 2003UW12291

PATIENT
  Age: 73 Year
  Sex: Female
  Weight: 73 kg

DRUGS (3)
  1. SENSORCAINE [Suspect]
     Indication: ANAESTHESIA
  2. CLONIDINE HCL [Suspect]
     Indication: ANAESTHESIA
     Dosage: 150 UG IM
     Route: 030
  3. ADRENALINE [Suspect]
     Indication: ANAESTHESIA
     Dosage: 100 UG IM
     Route: 030

REACTIONS (1)
  - CONVULSION [None]
